FAERS Safety Report 18313109 (Version 1)
Quarter: 2020Q3

REPORT INFORMATION
  Report Type: Spontaneous
  Country: US (occurrence: US)
  Receive Date: 20200925
  Receipt Date: 20200925
  Transmission Date: 20201103
  Serious: Yes (Other)
  Sender: FDA-Public Use
  Company Number: US-PFIZER INC-2020368296

PATIENT
  Age: 56 Year
  Sex: Male
  Weight: 77.11 kg

DRUGS (2)
  1. CHANTIX [Suspect]
     Active Substance: VARENICLINE TARTRATE
     Indication: SMOKING CESSATION THERAPY
     Dosage: 1 MG, 2X/DAY [ONCE IN THE MORNING, ONCE IN THE EVENING]
     Route: 048
     Dates: start: 2016, end: 2016
  2. CHANTIX [Suspect]
     Active Substance: VARENICLINE TARTRATE
     Dosage: 2 MG, DAILY (2 PER DAY)
     Dates: start: 2016, end: 2016

REACTIONS (3)
  - Fall [Unknown]
  - Foot fracture [Unknown]
  - Back pain [Unknown]

NARRATIVE: CASE EVENT DATE: 2017
